FAERS Safety Report 6890204-0 (Version None)
Quarter: 2010Q3

REPORT INFORMATION
  Report Type: 
  Country: None (occurrence: None)
  Receive Date: 20100730
  Receipt Date: 20080830
  Transmission Date: 20110219
  Serious: Yes (Other)
  Sender: FDA-Public Use
  Company Number: US-PFIZER INC-2008061336

PATIENT
  Sex: Female
  Weight: 69.545 kg

DRUGS (6)
  1. LIPITOR [Suspect]
     Indication: BLOOD CHOLESTEROL INCREASED
     Route: 048
     Dates: start: 20080101, end: 20080501
  2. LIPITOR [Suspect]
     Indication: HYPERLIPIDAEMIA
  3. WELLBUTRIN [Suspect]
     Indication: DEPRESSION
     Dosage: 150 MG BID EVERY DAY TDD:300 MG
     Route: 048
     Dates: start: 20080501, end: 20080601
  4. MOMETASONE FUROATE [Concomitant]
  5. ZETIA [Concomitant]
     Dosage: EVERYDAY
  6. NASONEX [Concomitant]
     Dosage: TWICE DAILY
     Route: 055

REACTIONS (12)
  - BALANCE DISORDER [None]
  - BLOOD CHOLESTEROL INCREASED [None]
  - BLOOD TRIGLYCERIDES INCREASED [None]
  - DEPRESSION [None]
  - DISTURBANCE IN ATTENTION [None]
  - DIZZINESS [None]
  - FATIGUE [None]
  - ILL-DEFINED DISORDER [None]
  - MUSCLE SPASMS [None]
  - MUSCULAR WEAKNESS [None]
  - PALPITATIONS [None]
  - THINKING ABNORMAL [None]
